FAERS Safety Report 8320929-1 (Version None)
Quarter: 2012Q2

REPORT INFORMATION
  Report Type: 
  Country: None (occurrence: None)
  Receive Date: 20120430
  Receipt Date: 20120423
  Transmission Date: 20120825
  Serious: Yes (Other)
  Sender: FDA-Public Use
  Company Number: US-JNJFOC-20120313552

PATIENT
  Sex: Male
  Weight: 82.1 kg

DRUGS (2)
  1. VALTREX [Suspect]
     Indication: HERPES ZOSTER
     Route: 048
     Dates: start: 20120311, end: 20120312
  2. NUCYNTA ER [Suspect]
     Indication: PAIN
     Dosage: EVERY 6 HOURS AS NEEDED
     Route: 048
     Dates: start: 20120311, end: 20120312

REACTIONS (2)
  - FEELING ABNORMAL [None]
  - HALLUCINATION [None]
